FAERS Safety Report 7336197-3 (Version None)
Quarter: 2011Q1

REPORT INFORMATION
  Report Type: 
  Country: None (occurrence: None)
  Receive Date: 20110302
  Receipt Date: 20110302
  Transmission Date: 20110831
  Serious: Yes (Other)
  Sender: FDA-Public Use
  Company Number: None

PATIENT
  Age: 47 Year
  Sex: Female
  Weight: 77.1115 kg

DRUGS (2)
  1. VENLAFAXINE HCL EXTENDED-RELEASE [Suspect]
     Indication: ANXIETY
     Dosage: 150MG 1XDAY PO
     Route: 048
     Dates: start: 20110101, end: 20110228
  2. VENLAFAXINE HCL EXTENDED-RELEASE [Suspect]
     Indication: DEPRESSION
     Dosage: 150MG 1XDAY PO
     Route: 048
     Dates: start: 20110101, end: 20110228

REACTIONS (6)
  - INSOMNIA [None]
  - PRODUCT SUBSTITUTION ISSUE [None]
  - FATIGUE [None]
  - ANXIETY [None]
  - CONDITION AGGRAVATED [None]
  - DEPRESSION [None]
